FAERS Safety Report 5488714-6 (Version None)
Quarter: 2007Q4

REPORT INFORMATION
  Report Type: 
  Country: None (occurrence: None)
  Receive Date: 20071017
  Receipt Date: 20071005
  Transmission Date: 20080405
  Serious: Yes (Other)
  Sender: FDA-Public Use
  Company Number: FR-PFIZER INC-2007085703

PATIENT
  Age: 57 Year
  Sex: Male

DRUGS (3)
  1. TAHOR [Suspect]
     Indication: CORONARY ARTERY DISEASE
  2. KARDEGIC [Concomitant]
  3. PLAVIX [Concomitant]

REACTIONS (2)
  - ARTHRALGIA [None]
  - MYALGIA [None]
